FAERS Safety Report 22345385 (Version 2)
Quarter: 2024Q1

REPORT INFORMATION
  Report Type: Spontaneous
  Country: US (occurrence: US)
  Receive Date: 20230519
  Receipt Date: 20240222
  Transmission Date: 20240410
  Serious: Yes (Hospitalization, Other)
  Sender: FDA-Public Use
  Company Number: US-PFIZER INC-PV202300019327

PATIENT
  Age: 82 Year
  Sex: Female
  Weight: 81.64 kg

DRUGS (10)
  1. VYNDAMAX [Suspect]
     Active Substance: TAFAMIDIS
     Indication: Acquired ATTR amyloidosis
     Dosage: 61 MG
  2. VYNDAMAX [Suspect]
     Active Substance: TAFAMIDIS
     Indication: Amyloidosis
  3. TORSEMIDE [Concomitant]
     Active Substance: TORSEMIDE
     Dosage: DAILY TAKE ONE TABLET BY MOUTH EVERY DAY
     Route: 048
  4. SYNTHROID [Concomitant]
     Active Substance: LEVOTHYROXINE SODIUM
     Dosage: TO TAKE THAT DAILY EXCEPT ON SATURDAY
  5. ATORVASTATIN [Concomitant]
     Active Substance: ATORVASTATIN
     Dosage: NIGHT PILL
  6. CARVEDILOL [Concomitant]
     Active Substance: CARVEDILOL
     Dosage: ONE TABLET BY ORAL ROUTINE, TWO TIMES EVERY DAY WITH FOOD AS DIRECTED
     Route: 048
  7. VITAMIN D3 [Concomitant]
     Active Substance: CHOLECALCIFEROL
     Dosage: 50000 IU, WEEKLY
     Route: 048
  8. POTASSIUM [Concomitant]
     Active Substance: POTASSIUM
     Dosage: IT IS A LARGE BLACK PILL
  9. PREDNISONE [Concomitant]
     Active Substance: PREDNISONE
     Indication: Arthritis
     Dosage: TAKE ONE TABLET BY MOUTH FOR 90 DAYS AND WITH FOOD
     Route: 048
  10. ELIQUIS [Concomitant]
     Active Substance: APIXABAN
     Dosage: ONE TABLET DAILY, MORNING AND NIGHT

REACTIONS (6)
  - Cardiac pacemaker insertion [Unknown]
  - Heart rate irregular [Unknown]
  - Atrial fibrillation [Unknown]
  - Blindness [Unknown]
  - Weight increased [Unknown]
  - Malaise [Unknown]
